FAERS Safety Report 8174965-9 (Version None)
Quarter: 2012Q1

REPORT INFORMATION
  Report Type: 
  Country: None (occurrence: None)
  Receive Date: 20120229
  Receipt Date: 20111222
  Transmission Date: 20120608
  Serious: No
  Sender: FDA-Public Use
  Company Number: US-GLAXOSMITHKLINE-A0959214A

PATIENT
  Age: 44 Year
  Sex: Female

DRUGS (3)
  1. SIMVASTATIN [Concomitant]
  2. ZYRTEC [Concomitant]
  3. VALTREX [Suspect]
     Indication: ORAL HERPES
     Dosage: 2G TWICE PER DAY
     Route: 048
     Dates: start: 20010101

REACTIONS (2)
  - ORAL HERPES [None]
  - DRUG INEFFECTIVE [None]
